FAERS Safety Report 25213849 (Version 5)
Quarter: 2025Q3

REPORT INFORMATION
  Report Type: Spontaneous
  Country: JP (occurrence: JP)
  Receive Date: 20250418
  Receipt Date: 20250919
  Transmission Date: 20251021
  Serious: Yes (Hospitalization, Other)
  Sender: ASTELLAS
  Company Number: JP-ASTELLAS-2025-AER-018328

PATIENT
  Age: 69 Year
  Sex: Male
  Weight: 60 kg

DRUGS (13)
  1. VYLOY [Suspect]
     Active Substance: ZOLBETUXIMAB-CLZB
     Indication: Gastric cancer
     Route: 042
     Dates: start: 20250313, end: 20250313
  2. VYLOY [Suspect]
     Active Substance: ZOLBETUXIMAB-CLZB
     Route: 042
     Dates: end: 20250406
  3. ESOMEPRAZOLE [Concomitant]
     Active Substance: ESOMEPRAZOLE
     Indication: Gastrooesophageal reflux disease
     Route: 048
     Dates: start: 20250216
  4. REBAMIPIDE [Concomitant]
     Active Substance: REBAMIPIDE
     Indication: Gastric cancer
     Route: 048
     Dates: start: 20250216
  5. OLANZAPINE OD tablet [Concomitant]
     Indication: Gastric cancer
     Route: 048
     Dates: start: 20250312, end: 20250317
  6. Palonosetron I.V. Injection [Concomitant]
     Indication: Gastric cancer
     Route: 042
     Dates: start: 20250313, end: 20250313
  7. POLARAMINE [Concomitant]
     Active Substance: DEXCHLORPHENIRAMINE MALEATE
     Indication: Gastric cancer
     Route: 042
     Dates: start: 20250313, end: 20250313
  8. CAPECITABINE [Concomitant]
     Active Substance: CAPECITABINE
     Indication: Gastric cancer
     Route: 048
     Dates: start: 20250313, end: 20250401
  9. DEXAMETHASONE SODIUM PHOSPHATE [Concomitant]
     Active Substance: DEXAMETHASONE SODIUM PHOSPHATE
     Indication: Gastric cancer
     Route: 042
     Dates: start: 20250313, end: 20250313
  10. AROKARIS I.V.infusion [Concomitant]
     Indication: Gastric cancer
     Route: 042
     Dates: start: 20250313, end: 20250313
  11. DECADRON tablet [Concomitant]
     Indication: Gastric cancer
     Route: 048
     Dates: start: 20250314, end: 20250316
  12. SULFAMETHOXAZOLE\TRIMETHOPRIM [Concomitant]
     Active Substance: SULFAMETHOXAZOLE\TRIMETHOPRIM
     Indication: Product used for unknown indication
     Route: 065
     Dates: start: 20250326
  13. ALLOPURINOL [Concomitant]
     Active Substance: ALLOPURINOL
     Indication: Hyperuricaemia
     Route: 048

REACTIONS (7)
  - Hypoalbuminaemia [Recovered/Resolved]
  - Hypogammaglobulinaemia [Recovered/Resolved]
  - Gastritis [Recovered/Resolved]
  - Protein-losing gastroenteropathy [Recovered/Resolved]
  - Oedema peripheral [Recovered/Resolved]
  - Abdominal pain [Recovered/Resolved]
  - Malaise [Recovered/Resolved]

NARRATIVE: CASE EVENT DATE: 20250313
